FAERS Safety Report 21860872 (Version 2)
Quarter: 2023Q1

REPORT INFORMATION
  Report Type: Report from Study
  Country: US (occurrence: US)
  Receive Date: 20230113
  Receipt Date: 20230317
  Transmission Date: 20230417
  Serious: No
  Sender: FDA-Public Use
  Company Number: US-ABBVIE-4231820

PATIENT
  Age: 45 Year
  Sex: Female

DRUGS (2)
  1. RINVOQ [Suspect]
     Active Substance: UPADACITINIB
     Indication: Rheumatoid arthritis
     Route: 048
  2. RINVOQ [Suspect]
     Active Substance: UPADACITINIB
     Indication: Rheumatoid arthritis
     Route: 048

REACTIONS (10)
  - Feeling abnormal [Unknown]
  - Rheumatoid arthritis [Unknown]
  - Herpes zoster [Recovering/Resolving]
  - Poor quality sleep [Unknown]
  - Stress fracture [Recovering/Resolving]
  - Viral infection [Recovering/Resolving]
  - Blood pressure abnormal [Recovering/Resolving]
  - Thyroid disorder [Recovering/Resolving]
  - Foot fracture [Recovering/Resolving]
  - Hypertension [Unknown]

NARRATIVE: CASE EVENT DATE: 20220601
